FAERS Safety Report 8036540-6 (Version None)
Quarter: 2012Q1

REPORT INFORMATION
  Report Type: 
  Country: None (occurrence: None)
  Receive Date: 20120111
  Receipt Date: 20120105
  Transmission Date: 20120608
  Serious: Yes (Other)
  Sender: FDA-Public Use
  Company Number: BR-PFIZER INC-2011240829

PATIENT
  Age: 65 Year
  Sex: Female
  Weight: 54 kg

DRUGS (9)
  1. VARENICLINE TARTRATE [Suspect]
     Dosage: 1 MG, 2X/DAY
     Route: 048
     Dates: start: 20111001, end: 20111201
  2. LEXOTAN [Concomitant]
     Indication: SLEEP DISORDER
     Dosage: 6 MG, 1X/DAY
     Dates: start: 20070101
  3. VARENICLINE TARTRATE [Suspect]
     Dosage: 0.5 MG, 2X/DAY
     Route: 048
     Dates: start: 20111001, end: 20111001
  4. ATENOLOL [Concomitant]
     Indication: HYPERTENSION
     Dosage: 25 MG, 1X/DAY
     Dates: start: 20070101
  5. VARENICLINE TARTRATE [Suspect]
     Indication: SMOKING CESSATION THERAPY
     Dosage: 0.5 MG, 1X/DAY
     Route: 048
     Dates: start: 20111006, end: 20111001
  6. LEXOTAN [Concomitant]
     Dosage: 3 MG, 1X/DAY
     Dates: start: 20080101
  7. SIMVASTATIN [Concomitant]
     Indication: BLOOD CHOLESTEROL
     Dosage: 40 MG, 1X/DAY
     Dates: start: 20110921
  8. ACETYLCYSTEINE [Concomitant]
     Indication: NASOPHARYNGITIS
     Dosage: 600 MG, 1X/DAY
     Dates: start: 20110701
  9. TENORETIC 100 [Concomitant]
     Indication: HYPERTENSION
     Dosage: 50 MG, 1X/DAY
     Dates: start: 20070101

REACTIONS (10)
  - DIZZINESS [None]
  - HYPERSOMNIA [None]
  - DECREASED APPETITE [None]
  - BLOOD PRESSURE ABNORMAL [None]
  - LISTLESS [None]
  - MALAISE [None]
  - HYPOTENSION [None]
  - DYSGEUSIA [None]
  - CONSTIPATION [None]
  - FLATULENCE [None]
